FAERS Safety Report 11478036 (Version 6)
Quarter: 2016Q1

REPORT INFORMATION
  Report Type: Spontaneous
  Country: CA (occurrence: CA)
  Receive Date: 20150909
  Receipt Date: 20160120
  Transmission Date: 20160525
  Serious: Yes (Hospitalization)
  Sender: FDA-Public Use
  Company Number: CA-ROCHE-1631227

PATIENT
  Age: 50 Year
  Sex: Female

DRUGS (5)
  1. OMNARIS [Concomitant]
     Active Substance: CICLESONIDE
  2. XOLAIR [Suspect]
     Active Substance: OMALIZUMAB
     Indication: ASTHMA
     Route: 058
     Dates: start: 20141119
  3. SPIRIVA [Concomitant]
     Active Substance: TIOTROPIUM BROMIDE MONOHYDRATE
  4. WARFARIN [Concomitant]
     Active Substance: WARFARIN
  5. ASMANEX [Concomitant]
     Active Substance: MOMETASONE FUROATE
     Route: 065

REACTIONS (8)
  - Asthma [Unknown]
  - Bone contusion [Unknown]
  - Forced expiratory volume decreased [Unknown]
  - Drug ineffective [Unknown]
  - Forced vital capacity decreased [Unknown]
  - Fall [Unknown]
  - Muscle strain [Unknown]
  - Middle insomnia [Unknown]

NARRATIVE: CASE EVENT DATE: 20141119
